FAERS Safety Report 10466648 (Version 1)
Quarter: 2014Q3

REPORT INFORMATION
  Report Type: Spontaneous
  Country: IN (occurrence: None)
  Receive Date: 20140918
  Receipt Date: 20140918
  Transmission Date: 20150326
  Serious: Yes (Hospitalization)
  Sender: FDA-Public Use
  Company Number: 2014JUB00135

PATIENT
  Age: 63 Year
  Sex: Male

DRUGS (2)
  1. OLANZAPINE. [Suspect]
     Active Substance: OLANZAPINE
     Indication: PSYCHOTIC DISORDER
  2. ESCITALOPRAM [Suspect]
     Active Substance: ESCITALOPRAM OXALATE
     Indication: DEPRESSION

REACTIONS (11)
  - Pallor [None]
  - Tachycardia [None]
  - Dehydration [None]
  - Hyponatraemia [None]
  - Urinary retention [None]
  - Disorientation [None]
  - Muscle spasms [None]
  - Asthenia [None]
  - Gait disturbance [None]
  - Lethargy [None]
  - Nausea [None]
